FAERS Safety Report 4604852-1 (Version None)
Quarter: 2005Q1

REPORT INFORMATION
  Report Type: 
  Country: None (occurrence: None)
  Receive Date: 20050311
  Receipt Date: 20050105
  Transmission Date: 20050727
  Serious: Yes (Other)
  Sender: FDA-Public Use
  Company Number: NL-SOLVAY-00205000110

PATIENT
  Age: 36 Year
  Sex: Female

DRUGS (2)
  1. MESALAZINE (MAUFACTURER UNKNOWN) [Suspect]
     Indication: COLITIS ULCERATIVE
     Dosage: DAILY DOSE: 1500 MILLIGRAM(S)
     Route: 054
     Dates: end: 20020101
  2. MESALAMINE [Suspect]
     Indication: COLITIS ULCERATIVE
     Dosage: DAILY DOSE: 2000 MILLIGRAM(S)
     Route: 048
     Dates: end: 20020101

REACTIONS (5)
  - CHEST PAIN [None]
  - COUGH [None]
  - NIGHT SWEATS [None]
  - PNEUMONITIS [None]
  - PYREXIA [None]
